FAERS Safety Report 15245294 (Version 2)
Quarter: 2018Q4

REPORT INFORMATION
  Report Type: Report from Study
  Country: US (occurrence: US)
  Receive Date: 20180806
  Receipt Date: 20181227
  Transmission Date: 20190204
  Serious: No
  Sender: FDA-Public Use
  Company Number: US-THERATECHNOLOGIES, INC.-TH-2018-00326

PATIENT

DRUGS (2)
  1. EGRIFTA [Suspect]
     Active Substance: TESAMORELIN
     Indication: LIPODYSTROPHY ACQUIRED
     Dosage: 2 MG MILLIGRAM(S), QD
     Route: 058
     Dates: start: 20180604
  2. EGRIFTA [Suspect]
     Active Substance: TESAMORELIN
     Dosage: 1 MG MILLIGRAM(S), UNK

REACTIONS (3)
  - Rash [Unknown]
  - Pain in extremity [Not Recovered/Not Resolved]
  - Musculoskeletal stiffness [Not Recovered/Not Resolved]
